FAERS Safety Report 21765954 (Version 1)
Quarter: 2022Q4

REPORT INFORMATION
  Report Type: Spontaneous
  Country: US (occurrence: None)
  Receive Date: 20221221
  Receipt Date: 20221221
  Transmission Date: 20230113
  Serious: No
  Sender: FDA-Public Use
  Company Number: None

PATIENT
  Age: 73 Year
  Sex: Female
  Weight: 66.68 kg

DRUGS (1)
  1. METHOTREXATE [Suspect]
     Active Substance: METHOTREXATE
     Indication: Psoriasis
     Dosage: TAKE 6 TABLETS BY MOUTH ONCE WEEKLY ON THE SAME DAY EACH WEEK AS DIRECTED.?
     Route: 048
     Dates: start: 202208

REACTIONS (2)
  - COVID-19 [None]
  - Therapy interrupted [None]
